FAERS Safety Report 10009935 (Version 2)
Quarter: 2014Q1

REPORT INFORMATION
  Report Type: Spontaneous
  Country: US (occurrence: US)
  Receive Date: 20140312
  Receipt Date: 20140312
  Transmission Date: 20141002
  Serious: Yes (Other)
  Sender: FDA-Public Use
  Company Number: US-INCYTE CORPORATION-2013IN000339

PATIENT
  Age: 70 Year
  Sex: Male
  Weight: 78.01 kg

DRUGS (14)
  1. JAKAFI [Suspect]
     Indication: MYELOFIBROSIS
     Dosage: 10 MG, QD
     Route: 048
     Dates: start: 20120408
  2. JAKAFI [Suspect]
     Dosage: 10 MG, BID
     Dates: start: 20120424
  3. JAKAFI [Suspect]
     Dosage: 15 MG, BID
     Route: 048
     Dates: start: 20120530
  4. JAKAFI [Suspect]
     Dosage: 5 MG, UNK
     Route: 048
     Dates: end: 20130404
  5. JAKAFI [Suspect]
     Dosage: 10 MG, UNK
     Route: 048
     Dates: start: 20120906
  6. ACYCLOVIR [Concomitant]
     Dosage: 400 MG, QD
     Route: 048
  7. ALLOPURINOL [Concomitant]
     Dosage: 100 MG, BID
     Route: 048
  8. VITAMINS [Concomitant]
     Dosage: 1 TABLET QD
     Route: 048
  9. FOLIC ACID [Concomitant]
     Dosage: 400 MCG, QD
     Route: 048
  10. LISINOPRIL [Concomitant]
     Dosage: 10 MG, QD
     Route: 048
  11. NYSTATIN [Concomitant]
     Dosage: 5 ML (OF 100000 U/ML) MOUTH/THROAT QID X 10 DAYS
  12. POTASSIUM CHLORIDE W/SODIUM CHLORIDE [Concomitant]
     Dosage: 10 MEQ, QD
  13. ASPIRIN [Concomitant]
     Dosage: 325 MG, QD
     Dates: end: 20120628
  14. ASPIRIN [Concomitant]
     Dosage: 81 MG, QD
     Route: 048
     Dates: start: 20130628, end: 20120726

REACTIONS (15)
  - Anaemia [Unknown]
  - Red blood cell count decreased [Unknown]
  - Sinusitis [Recovered/Resolved]
  - Bronchitis [Recovered/Resolved]
  - Mastoiditis [Unknown]
  - Frequent bowel movements [Unknown]
  - Mucosal inflammation [Unknown]
  - Muscle spasms [Unknown]
  - Dyspnoea [Unknown]
  - Epistaxis [Unknown]
  - Anxiety [None]
  - Diarrhoea [Unknown]
  - Erythema [Unknown]
  - Contusion [Unknown]
  - Dizziness [Unknown]
